FAERS Safety Report 10332403 (Version 1)
Quarter: 2014Q3

REPORT INFORMATION
  Report Type: Spontaneous
  Country: US (occurrence: US)
  Receive Date: 20140722
  Receipt Date: 20140722
  Transmission Date: 20150326
  Serious: No
  Sender: FDA-Public Use
  Company Number: US-ASTRAZENECA-2013SE72213

PATIENT
  Age: 14 Year
  Sex: Male
  Weight: 49.9 kg

DRUGS (8)
  1. SEROQUEL [Suspect]
     Active Substance: QUETIAPINE FUMARATE
     Indication: AGGRESSION
     Dosage: 25 MG IN THE MORNING, 25 MG IN THE AFTERNOON AND 50 MG AT NIGHT, 100 MG DAILY
     Route: 048
     Dates: start: 201304
  2. SEROQUEL [Suspect]
     Active Substance: QUETIAPINE FUMARATE
     Indication: SENSORY DISTURBANCE
     Dosage: 25 MG IN THE MORNING, 25 MG IN THE AFTERNOON AND 50 MG AT NIGHT, 100 MG DAILY
     Route: 048
     Dates: start: 201304
  3. SEROQUEL [Suspect]
     Active Substance: QUETIAPINE FUMARATE
     Indication: SENSORY DISTURBANCE
     Dosage: 25 MG IN THE MORNING, AND 50 MG AT NIGHT
     Route: 048
     Dates: start: 201301
  4. ATAVOR [Concomitant]
     Indication: AFFECTIVE DISORDER
     Dates: start: 2010
  5. SEROQUEL [Suspect]
     Active Substance: QUETIAPINE FUMARATE
     Indication: SENSORY DISTURBANCE
     Dosage: 25 MG IN THE MORNING, 25 MG IN THE AFTERNOON AND 50 MG AT NIGHT, 100 MG DAILY
     Route: 048
     Dates: start: 2009
  6. SEROQUEL [Suspect]
     Active Substance: QUETIAPINE FUMARATE
     Indication: AGGRESSION
     Dosage: 25 MG IN THE MORNING, AND 50 MG AT NIGHT
     Route: 048
     Dates: start: 201301
  7. SEROQUEL [Suspect]
     Active Substance: QUETIAPINE FUMARATE
     Indication: AGGRESSION
     Dosage: 25 MG IN THE MORNING, 25 MG IN THE AFTERNOON AND 50 MG AT NIGHT, 100 MG DAILY
     Route: 048
     Dates: start: 2009
  8. PROPANOLOL [Concomitant]
     Active Substance: PROPRANOLOL HYDROCHLORIDE
     Indication: TIC
     Dates: start: 20130803

REACTIONS (5)
  - Dyskinesia [Unknown]
  - Adverse event [Unknown]
  - Muscle spasms [Unknown]
  - Off label use [Unknown]
  - Insomnia [Unknown]

NARRATIVE: CASE EVENT DATE: 2009
